FAERS Safety Report 15814783 (Version 2)
Quarter: 2019Q4

REPORT INFORMATION
  Report Type: Spontaneous
  Country: US (occurrence: US)
  Receive Date: 20190111
  Receipt Date: 20191121
  Transmission Date: 20200122
  Serious: No
  Sender: FDA-Public Use
  Company Number: US-INTERCEPT-PMOCA2016000083

PATIENT
  Age: 46 Year
  Sex: Female

DRUGS (3)
  1. OCALIVA [Suspect]
     Active Substance: OBETICHOLIC ACID
     Indication: PRIMARY BILIARY CHOLANGITIS
     Dosage: 5 MG, QD
     Route: 048
     Dates: start: 20160720
  2. ESTRAPATCH [Suspect]
     Active Substance: ESTRADIOL
     Indication: HOT FLUSH
  3. OCALIVA [Suspect]
     Active Substance: OBETICHOLIC ACID
     Dosage: 10 MG, QD
     Route: 048
     Dates: start: 20170716

REACTIONS (6)
  - Hot flush [Not Recovered/Not Resolved]
  - Skin lesion [Not Recovered/Not Resolved]
  - Frequent bowel movements [Unknown]
  - Product dose omission [Unknown]
  - Flatulence [Unknown]
  - Abdominal pain [Unknown]

NARRATIVE: CASE EVENT DATE: 20160723
